FAERS Safety Report 10029289 (Version 1)
Quarter: 2014Q1

REPORT INFORMATION
  Report Type: Spontaneous
  Country: PL (occurrence: PL)
  Receive Date: 20140321
  Receipt Date: 20140321
  Transmission Date: 20141002
  Serious: Yes (Other)
  Sender: FDA-Public Use
  Company Number: PHHY2014PL031382

PATIENT
  Age: 58 Year
  Sex: Female
  Weight: 100 kg

DRUGS (1)
  1. SANDIMMUN NEORAL [Suspect]
     Indication: PSORIASIS
     Dosage: 200 MG, UNK
     Route: 048
     Dates: start: 20100512, end: 20100705

REACTIONS (2)
  - Oliguria [Unknown]
  - Urinary retention [Unknown]
